FAERS Safety Report 25456475 (Version 1)
Quarter: 2025Q2

REPORT INFORMATION
  Report Type: Spontaneous
  Country: TR (occurrence: TR)
  Receive Date: 20250619
  Receipt Date: 20250619
  Transmission Date: 20250716
  Serious: Yes (Other)
  Sender: PRECISION DOSE, INC.
  Company Number: TR-PRECISION DOSE, INC.-2025PRD00004

PATIENT
  Age: 33 Year
  Sex: Male

DRUGS (4)
  1. DOXYCYCLINE [Suspect]
     Active Substance: DOXYCYCLINE
     Indication: Intervertebral discitis
     Route: 048
  2. DOXYCYCLINE [Suspect]
     Active Substance: DOXYCYCLINE
     Route: 048
  3. GENTAMICIN [Concomitant]
     Active Substance: GENTAMICIN
  4. RIFAMPIN [Concomitant]
     Active Substance: RIFAMPIN

REACTIONS (2)
  - Oesophagitis ulcerative [Recovered/Resolved]
  - Laryngitis [Recovered/Resolved]
